FAERS Safety Report 8084244-6 (Version None)
Quarter: 2012Q1

REPORT INFORMATION
  Report Type: 
  Country: None (occurrence: None)
  Receive Date: 20120128
  Receipt Date: 20110307
  Transmission Date: 20120608
  Serious: No
  Sender: FDA-Public Use
  Company Number: US-ABBOTT-11P-163-0709661-00

PATIENT
  Age: 75 Year
  Sex: Female

DRUGS (6)
  1. PREVACID [Concomitant]
     Indication: GASTROOESOPHAGEAL REFLUX DISEASE
  2. SYNTHROID [Concomitant]
     Indication: HYPOTHYROIDISM
     Dosage: 2 TABS 6 DAYS/WEEK, 1 TAB 1 DAY/WEEK
  3. HUMIRA [Suspect]
     Dates: start: 20110201
  4. ARTHROTEC [Concomitant]
     Indication: PSORIATIC ARTHROPATHY
     Dosage: 50 UC TWICE DAILY
  5. TOPICAL STEROID CREAMS [Concomitant]
     Indication: PSORIASIS
     Route: 061
  6. HUMIRA [Suspect]
     Indication: PSORIATIC ARTHROPATHY
     Dates: start: 20101201

REACTIONS (4)
  - BLEPHAROSPASM [None]
  - ARTHRITIS [None]
  - MIDDLE INSOMNIA [None]
  - INJECTION SITE PAIN [None]
